FAERS Safety Report 8375902-4 (Version None)
Quarter: 2012Q1

REPORT INFORMATION
  Report Type: 
  Country: None (occurrence: None)
  Receive Date: 20120323
  Receipt Date: 20111024
  Transmission Date: 20120608
  Serious: Yes (Hospitalization)
  Sender: FDA-Public Use
  Company Number: 163-21880-11080230

PATIENT
  Age: 53 Year
  Sex: Male

DRUGS (6)
  1. CABERGOLINE [Concomitant]
  2. DEXAMETHASONE [Concomitant]
  3. LEVOTHYROXINE SODIUM [Concomitant]
  4. VELCADE [Concomitant]
  5. VITAMIN D [Concomitant]
  6. REVLIMID [Suspect]
     Indication: MULTIPLE MYELOMA
     Dosage: 25 MG, QD X 21 D/OFF 7, PO
     Route: 048
     Dates: start: 20110630, end: 20110930

REACTIONS (5)
  - CONSTIPATION [None]
  - RED BLOOD CELL COUNT DECREASED [None]
  - ABDOMINAL DISCOMFORT [None]
  - DRUG INEFFECTIVE [None]
  - GASTRIC PH INCREASED [None]
